FAERS Safety Report 10483552 (Version 1)
Quarter: 2014Q3

REPORT INFORMATION
  Report Type: Spontaneous
  Country: US (occurrence: None)
  Receive Date: 20140929
  Receipt Date: 20140929
  Transmission Date: 20150326
  Serious: Yes (Other)
  Sender: FDA-Public Use
  Company Number: None

PATIENT
  Age: 39 Year
  Sex: Female
  Weight: 78.47 kg

DRUGS (1)
  1. CLINDAMYCIN [Suspect]
     Active Substance: CLINDAMYCIN\CLINDAMYCIN PHOSPHATE
     Indication: INFECTION PROPHYLAXIS
     Route: 048
     Dates: start: 20140408, end: 20140409

REACTIONS (7)
  - Flushing [None]
  - Skin burning sensation [None]
  - Fatigue [None]
  - Clostridium test positive [None]
  - Diarrhoea [None]
  - Cryptosporidiosis infection [None]
  - Abdominal pain [None]

NARRATIVE: CASE EVENT DATE: 20140405
